FAERS Safety Report 14567425 (Version 17)
Quarter: 2023Q4

REPORT INFORMATION
  Report Type: Report from Study
  Country: DE (occurrence: DE)
  Receive Date: 20180223
  Receipt Date: 20231204
  Transmission Date: 20240110
  Serious: Yes (Hospitalization, Other)
  Sender: FDA-Public Use
  Company Number: DE-ROCHE-1612261

PATIENT
  Age: 75 Year
  Sex: Male
  Weight: 81 kg

DRUGS (39)
  1. QUETIAPINE [Suspect]
     Active Substance: QUETIAPINE
     Indication: Product used for unknown indication
     Dosage: 25 MILLIGRAM, QD (FILM-COATED TABLET)
     Route: 048
  2. QUETIAPINE [Suspect]
     Active Substance: QUETIAPINE
     Dosage: 25 MILLIGRAM, QD (FILM-COATED TABLET)
     Route: 065
  3. NADROPARIN CALCIUM [Suspect]
     Active Substance: NADROPARIN CALCIUM
     Indication: Venous thrombosis limb
     Dosage: UNK
     Route: 065
     Dates: start: 201507
  4. ENOXAPARIN SODIUM [Suspect]
     Active Substance: ENOXAPARIN SODIUM
     Indication: Venous thrombosis limb
     Dosage: UNK
     Route: 065
     Dates: start: 201507
  5. TOCILIZUMAB [Suspect]
     Active Substance: TOCILIZUMAB
     Indication: Myalgia
     Dosage: 324 MILLIGRAM, QD (162 MG, BID)
     Route: 058
     Dates: start: 20140601, end: 201506
  6. TOCILIZUMAB [Suspect]
     Active Substance: TOCILIZUMAB
     Indication: Vasculitis
     Dosage: 162 MG, QW (162 MG, UNK, WEEKLY)
     Route: 058
     Dates: start: 20140601, end: 201506
  7. TOCILIZUMAB [Suspect]
     Active Substance: TOCILIZUMAB
     Indication: Rheumatoid arthritis
     Dosage: 324 MILLIGRAM, QD (162 MG, BID)
     Route: 058
     Dates: start: 201506
  8. TOCILIZUMAB [Suspect]
     Active Substance: TOCILIZUMAB
     Indication: Giant cell arteritis
     Dosage: 162 MG, BID
     Route: 058
     Dates: start: 20150607
  9. TOCILIZUMAB [Suspect]
     Active Substance: TOCILIZUMAB
     Dosage: 162 MG, BID
     Route: 058
     Dates: start: 20150706
  10. TOCILIZUMAB [Suspect]
     Active Substance: TOCILIZUMAB
     Dosage: 162 MG, 10 DAY
     Route: 058
     Dates: start: 20150706
  11. TOCILIZUMAB [Suspect]
     Active Substance: TOCILIZUMAB
     Dosage: 324 MILLIGRAM, 12 DAYS
     Route: 058
     Dates: start: 20150706, end: 20171025
  12. TOCILIZUMAB [Suspect]
     Active Substance: TOCILIZUMAB
     Dosage: 324 MILLIGRAM, QD (162 MG, BID)
     Route: 058
     Dates: start: 20150706
  13. TOCILIZUMAB [Suspect]
     Active Substance: TOCILIZUMAB
     Dosage: 648 MILLIGRAM, QD (324 MILLIGRAM, BID)
     Route: 058
     Dates: start: 20150706, end: 20171012
  14. TOCILIZUMAB [Suspect]
     Active Substance: TOCILIZUMAB
     Dosage: 162 MILLIGRAM, Q2W (EVERY 14 DAYS)
     Route: 058
     Dates: start: 201704, end: 20171025
  15. TOCILIZUMAB [Suspect]
     Active Substance: TOCILIZUMAB
     Dosage: 162 MG, Q10D
     Route: 058
     Dates: start: 20170414, end: 20171025
  16. TOCILIZUMAB [Suspect]
     Active Substance: TOCILIZUMAB
     Dosage: 162 MILLIGRAM, QD
     Route: 058
     Dates: start: 20180131
  17. TOCILIZUMAB [Suspect]
     Active Substance: TOCILIZUMAB
     Dosage: 162 MG, EVERY 14 DAYS
     Route: 058
     Dates: start: 20180414
  18. TOCILIZUMAB [Suspect]
     Active Substance: TOCILIZUMAB
     Dosage: 162 MG, 12 DAY
     Route: 058
  19. TOCILIZUMAB [Suspect]
     Active Substance: TOCILIZUMAB
     Dosage: 162 MG, 10 DAYS
     Route: 058
     Dates: start: 20180414
  20. TOCILIZUMAB [Suspect]
     Active Substance: TOCILIZUMAB
     Dosage: 162 MG, UNK
     Route: 058
  21. TOCILIZUMAB [Suspect]
     Active Substance: TOCILIZUMAB
     Dosage: 162 MG, EVERY 10 DAYS
     Route: 058
     Dates: start: 20180414
  22. TOCILIZUMAB [Suspect]
     Active Substance: TOCILIZUMAB
     Dosage: 162 MILLIGRAM, Q3W
     Route: 058
     Dates: start: 201811
  23. TOCILIZUMAB [Suspect]
     Active Substance: TOCILIZUMAB
     Dosage: 162 MILLIGRAM, QD
     Route: 065
  24. TOCILIZUMAB [Suspect]
     Active Substance: TOCILIZUMAB
     Dosage: 162 MILLIGRAM, QW
     Route: 058
     Dates: start: 20190227, end: 20190327
  25. TOCILIZUMAB [Suspect]
     Active Substance: TOCILIZUMAB
     Dosage: 162 MILLIGRAM, 9 DAYS
     Route: 058
     Dates: start: 20190328, end: 20190404
  26. TOCILIZUMAB [Suspect]
     Active Substance: TOCILIZUMAB
     Dosage: 162 MILLIGRAM, QW
     Route: 058
     Dates: start: 202005, end: 20200527
  27. ENOXAPARIN SODIUM [Suspect]
     Active Substance: ENOXAPARIN SODIUM
     Indication: Venous thrombosis limb
     Dosage: UNK
     Route: 065
     Dates: start: 201507
  28. CHOLECALCIFEROL [Suspect]
     Active Substance: CHOLECALCIFEROL
     Indication: Osteoporosis
     Dosage: 1000 INTERNATIONAL UNIT
     Route: 048
     Dates: start: 201204
  29. DENOSUMAB [Suspect]
     Active Substance: DENOSUMAB
     Indication: Osteoporosis
     Dosage: 60 MILLIGRAM, QMO
     Route: 058
     Dates: start: 201405
  30. PROLIA [Suspect]
     Active Substance: DENOSUMAB
     Indication: Osteoporosis
     Dosage: 60 MILLIGRAM, MONTHLY
     Route: 058
     Dates: start: 201405
  31. PROLIA [Suspect]
     Active Substance: DENOSUMAB
     Dosage: 60 MILLIGRAM, 6 MONTHS
     Route: 058
     Dates: start: 201405
  32. PANTOPRAZOLE [Concomitant]
     Active Substance: PANTOPRAZOLE
     Indication: Product used for unknown indication
     Dosage: UNK
     Route: 065
  33. ESCITALOPRAM [Concomitant]
     Active Substance: ESCITALOPRAM OXALATE
     Indication: Product used for unknown indication
     Dosage: QD 10 GTT DROPS (10 DF,UNK)
     Route: 048
  34. ESCITALOPRAM [Concomitant]
     Active Substance: ESCITALOPRAM OXALATE
     Dosage: 5 GTT DROPS
     Route: 048
  35. ESCITALOPRAM [Concomitant]
     Active Substance: ESCITALOPRAM OXALATE
     Dosage: 8 GTT DROPS ((DROP (1/12 MILLILITRE)
     Route: 048
  36. LISINOPRIL [Concomitant]
     Active Substance: LISINOPRIL
     Indication: Product used for unknown indication
     Dosage: 20 MILLIGRAM
     Route: 065
  37. CORTISONE ACETATE [Concomitant]
     Active Substance: CORTISONE ACETATE
     Indication: Product used for unknown indication
     Dosage: 10 MILLIGRAM, QD (DAYS)
     Route: 065
  38. AMLODIPINE BESYLATE [Concomitant]
     Active Substance: AMLODIPINE BESYLATE
     Indication: Product used for unknown indication
     Dosage: 2.5 MILLIGRAM, QD
     Route: 065
  39. AMLODIPINE BESYLATE [Concomitant]
     Active Substance: AMLODIPINE BESYLATE
     Dosage: 5 MILLIGRAM, QD
     Route: 065

REACTIONS (27)
  - Suture rupture [Recovered/Resolved]
  - Lymphocele [Recovered/Resolved]
  - Rash erythematous [Unknown]
  - Prostate cancer [Recovered/Resolved]
  - Soft tissue disorder [Recovered/Resolved]
  - Impaired healing [Recovered/Resolved]
  - Wound dehiscence [Recovered/Resolved]
  - Erysipelas [Recovering/Resolving]
  - Sepsis [Recovering/Resolving]
  - Acetabulum fracture [Recovering/Resolving]
  - Lymphoedema [Recovered/Resolved]
  - Angioedema [Recovered/Resolved]
  - Autoimmune disorder [Unknown]
  - Venous thrombosis limb [Not Recovered/Not Resolved]
  - Eye inflammation [Not Recovered/Not Resolved]
  - Bronchitis [Not Recovered/Not Resolved]
  - Hyperaesthesia [Unknown]
  - Dysuria [Unknown]
  - C-reactive protein increased [Recovering/Resolving]
  - Sleep disorder [Unknown]
  - Fall [Unknown]
  - Depression [Not Recovered/Not Resolved]
  - Leukopenia [Recovered/Resolved]
  - Platelet count decreased [Unknown]
  - Inappropriate schedule of product administration [Unknown]
  - Product use in unapproved indication [Unknown]
  - Off label use [Unknown]

NARRATIVE: CASE EVENT DATE: 20140701
